FAERS Safety Report 7808361-8 (Version None)
Quarter: 2011Q4

REPORT INFORMATION
  Report Type: 
  Country: None (occurrence: None)
  Receive Date: 20111007
  Receipt Date: 20110930
  Transmission Date: 20120403
  Serious: Yes (Hospitalization)
  Sender: FDA-Public Use
  Company Number: 1063689

PATIENT
  Age: 61 Year
  Sex: Female

DRUGS (2)
  1. PACLITAXEL [Suspect]
     Indication: BREAST CANCER
     Dosage: 150 MG CYCLIC, UNKNOWN, INTRAVENOUS
     Route: 042
     Dates: start: 20110915, end: 20110929
  2. DEXAMETHASONE SODIUM PHOSPHATE [Concomitant]

REACTIONS (3)
  - BACK PAIN [None]
  - DYSAESTHESIA PHARYNX [None]
  - ERYTHEMA [None]
